FAERS Safety Report 13227557 (Version 1)
Quarter: 2017Q1

REPORT INFORMATION
  Report Type: Report from Study
  Country: NL (occurrence: NL)
  Receive Date: 20170213
  Receipt Date: 20170213
  Transmission Date: 20170428
  Serious: Yes (Other)
  Sender: FDA-Public Use
  Company Number: NL-EMD SERONO-8126733

PATIENT

DRUGS (1)
  1. REBIF [Suspect]
     Active Substance: INTERFERON BETA-1A
     Indication: MULTIPLE SCLEROSIS
     Route: 058

REACTIONS (6)
  - Wound [Recovering/Resolving]
  - Skin discomfort [Unknown]
  - Contusion [Unknown]
  - Skin exfoliation [Unknown]
  - Necrosis [Unknown]
  - Platelet count decreased [Unknown]
